FAERS Safety Report 15953777 (Version 3)
Quarter: 2022Q1

REPORT INFORMATION
  Report Type: Spontaneous
  Country: GB (occurrence: GB)
  Receive Date: 20190212
  Receipt Date: 20220202
  Transmission Date: 20220423
  Serious: Yes (Death, Other)
  Sender: FDA-Public Use
  Company Number: GB-PFIZER INC-2018319942

PATIENT
  Age: 35 Year
  Sex: Male

DRUGS (6)
  1. XANAX [Suspect]
     Active Substance: ALPRAZOLAM
     Dosage: UNK
     Dates: start: 201710
  2. HEROIN [Concomitant]
     Active Substance: DIAMORPHINE
     Dosage: UNK
  3. METHADONE [Concomitant]
     Active Substance: METHADONE HYDROCHLORIDE
     Dosage: UNK
  4. VALIUM [Concomitant]
     Active Substance: DIAZEPAM
     Dosage: UNK
  5. GABAPENTIN [Concomitant]
     Active Substance: GABAPENTIN
     Dosage: UNK
  6. COCAINE [Concomitant]
     Active Substance: COCAINE
     Dosage: UNK

REACTIONS (6)
  - Overdose [Fatal]
  - Drug dependence [Fatal]
  - Suspected counterfeit product [Fatal]
  - Prescription drug used without a prescription [Unknown]
  - Feeling abnormal [Unknown]
  - Fall [Unknown]

NARRATIVE: CASE EVENT DATE: 20171001
